FAERS Safety Report 5813171-7 (Version None)
Quarter: 2008Q3

REPORT INFORMATION
  Report Type: 
  Country: None (occurrence: None)
  Receive Date: 20080717
  Receipt Date: 20080317
  Transmission Date: 20090109
  Serious: No
  Sender: FDA-Public Use
  Company Number: A0715729A

PATIENT
  Age: 59 Year
  Sex: Male

DRUGS (1)
  1. NICORETTE (MINT) [Suspect]
     Dates: start: 20080307, end: 20080312

REACTIONS (3)
  - HEADACHE [None]
  - HEART RATE INCREASED [None]
  - MALAISE [None]
